FAERS Safety Report 7280026-3 (Version None)
Quarter: 2011Q1

REPORT INFORMATION
  Report Type: 
  Country: None (occurrence: None)
  Receive Date: 20110208
  Receipt Date: 20110126
  Transmission Date: 20110831
  Serious: Yes (Hospitalization)
  Sender: FDA-Public Use
  Company Number: ES-ELI_LILLY_AND_COMPANY-ES201101006307

PATIENT
  Sex: Female

DRUGS (2)
  1. IRON [Concomitant]
     Route: 048
     Dates: start: 20110101
  2. FORTEO [Suspect]
     Indication: OSTEOPOROSIS
     Dosage: 20 UG, DAILY (1/D)
     Route: 058
     Dates: start: 20100126, end: 20101121

REACTIONS (3)
  - DEVICE DISLOCATION [None]
  - HIP ARTHROPLASTY [None]
  - URINARY TRACT INFECTION [None]
